FAERS Safety Report 17157935 (Version 1)
Quarter: 2019Q4

REPORT INFORMATION
  Report Type: Spontaneous
  Country: US (occurrence: US)
  Receive Date: 20191213
  Receipt Date: 20191213
  Transmission Date: 20200122
  Serious: Yes (Life-Threatening, Hospitalization)
  Sender: FDA-Public Use
  Company Number: None

PATIENT
  Age: 27 Year
  Sex: Male
  Weight: 81 kg

DRUGS (1)
  1. ZZZQUIL NIGHTTIME SLEEP-AID [Suspect]
     Active Substance: DIPHENHYDRAMINE HYDROCHLORIDE
     Indication: SLEEP DISORDER
     Dates: start: 20191113, end: 20191114

REACTIONS (4)
  - Tongue discolouration [None]
  - Dyspnoea [None]
  - Swollen tongue [None]
  - Dysphagia [None]

NARRATIVE: CASE EVENT DATE: 20191114
